FAERS Safety Report 4989679-3 (Version None)
Quarter: 2006Q2

REPORT INFORMATION
  Report Type: 
  Country: None (occurrence: None)
  Receive Date: 20060426
  Receipt Date: 20060406
  Transmission Date: 20061013
  Serious: Yes (Hospitalization)
  Sender: FDA-Public Use
  Company Number: US200604002430

PATIENT
  Sex: Male

DRUGS (1)
  1. HUMATROPE [Suspect]

REACTIONS (5)
  - ABDOMINAL PAIN [None]
  - BRAIN OPERATION [None]
  - CONVULSION [None]
  - FALL [None]
  - FATIGUE [None]
